FAERS Safety Report 6838321-5 (Version None)
Quarter: 2010Q3

REPORT INFORMATION
  Report Type: 
  Country: None (occurrence: None)
  Receive Date: 20100713
  Receipt Date: 20070609
  Transmission Date: 20110219
  Serious: No
  Sender: FDA-Public Use
  Company Number: US-PFIZER INC-2007048682

PATIENT
  Sex: Male
  Weight: 89.8 kg

DRUGS (3)
  1. CHANTIX [Suspect]
     Indication: SMOKING CESSATION THERAPY
     Route: 048
     Dates: start: 20070605
  2. PLAVIX [Concomitant]
     Dates: start: 20070501
  3. TOPROL-XL [Concomitant]
     Dates: start: 20070501

REACTIONS (4)
  - DIZZINESS [None]
  - FEELING HOT [None]
  - HYPERHIDROSIS [None]
  - NAUSEA [None]
